FAERS Safety Report 7900224-2 (Version None)
Quarter: 2011Q4

REPORT INFORMATION
  Report Type: 
  Country: None (occurrence: None)
  Receive Date: 20111104
  Receipt Date: 20111001
  Transmission Date: 20120403
  Serious: Yes (Hospitalization)
  Sender: FDA-Public Use
  Company Number: 2011AP002573

PATIENT
  Age: 55 Year
  Sex: Female

DRUGS (2)
  1. AMITRIPTYLINE HCL [Suspect]
     Dosage: 99 TAB
  2. ALPRAZOLAM [Suspect]
     Dosage: 46 TAB

REACTIONS (5)
  - UNRESPONSIVE TO STIMULI [None]
  - LOSS OF CONSCIOUSNESS [None]
  - MULTIPLE DRUG OVERDOSE INTENTIONAL [None]
  - SUICIDE ATTEMPT [None]
  - CHEYNE-STOKES RESPIRATION [None]
